FAERS Safety Report 17860661 (Version 1)
Quarter: 2020Q2

REPORT INFORMATION
  Report Type: Spontaneous
  Country: US (occurrence: US)
  Receive Date: 20200604
  Receipt Date: 20200604
  Transmission Date: 20200714
  Serious: No
  Sender: FDA-Public Use
  Company Number: US-SA-2020SA143042

PATIENT

DRUGS (8)
  1. MONTELUKAST [Concomitant]
     Active Substance: MONTELUKAST SODIUM
  2. QVAR REDIHALER [Concomitant]
     Active Substance: BECLOMETHASONE DIPROPIONATE
  3. ALLOPURINOL. [Concomitant]
     Active Substance: ALLOPURINOL
  4. OLMESARTAN+HCTZ/MYLAN [Concomitant]
  5. PREGABALIN. [Concomitant]
     Active Substance: PREGABALIN
  6. ATORVASTATIN [Concomitant]
     Active Substance: ATORVASTATIN
  7. ADVAIR HFA [Concomitant]
     Active Substance: FLUTICASONE PROPIONATE\SALMETEROL XINAFOATE
  8. DUPIXENT [Suspect]
     Active Substance: DUPILUMAB
     Indication: ASTHMA
     Dosage: 300 MG, QOW
     Route: 058
     Dates: start: 20200422

REACTIONS (4)
  - Eye irritation [Unknown]
  - Pruritus [Unknown]
  - Fatigue [Unknown]
  - Pain [Unknown]
